FAERS Safety Report 17602245 (Version 2)
Quarter: 2020Q2

REPORT INFORMATION
  Report Type: Spontaneous
  Country: US (occurrence: US)
  Receive Date: 20200331
  Receipt Date: 20200514
  Transmission Date: 20200713
  Serious: Yes (Other)
  Sender: FDA-Public Use
  Company Number: US-PFIZER INC-2020128176

PATIENT
  Age: 70 Year
  Sex: Female
  Weight: 81.65 kg

DRUGS (2)
  1. XELJANZ XR [Suspect]
     Active Substance: TOFACITINIB CITRATE
     Indication: RHEUMATOID ARTHRITIS
     Dosage: 5.5 MG, 2X/DAY (11 MG TABLET 1/2 IN THE MORNING AND 1/2 AT NIGHT )
     Route: 048
     Dates: start: 20200313, end: 20200314
  2. XELJANZ XR [Suspect]
     Active Substance: TOFACITINIB CITRATE
     Dosage: 5.5 MG, 2X/DAY (11 MG TABLET 1/2 IN THE MORNING AND 1/2 AT NIGHT )
     Route: 048
     Dates: start: 20200317, end: 20200320

REACTIONS (9)
  - Product dispensing error [Unknown]
  - Conversion disorder [Unknown]
  - Rash erythematous [Recovering/Resolving]
  - Dyspepsia [Recovered/Resolved]
  - Dementia Alzheimer^s type [Unknown]
  - Wrong technique in product usage process [Recovered/Resolved]
  - Movement disorder [Recovering/Resolving]
  - Herpes zoster [Recovering/Resolving]
  - Eczema [Recovering/Resolving]

NARRATIVE: CASE EVENT DATE: 20200313
